FAERS Safety Report 4778443-6 (Version None)
Quarter: 2005Q3

REPORT INFORMATION
  Report Type: 
  Country: None (occurrence: None)
  Receive Date: 20050923
  Receipt Date: 20050923
  Transmission Date: 20060218
  Serious: Yes (Other)
  Sender: FDA-Public Use
  Company Number: None

PATIENT
  Age: 88 Year
  Sex: Male
  Weight: 67.1 kg

DRUGS (10)
  1. OXYBUTYNIN CHLORIDE [Suspect]
  2. CLOPIDOGREL BISULFATE [Concomitant]
  3. SERTRALINE HCL [Concomitant]
  4. SIMVASTATIN [Concomitant]
  5. TRAZODONE HCL [Concomitant]
  6. PENTOXIFYLLINE [Concomitant]
  7. ASPIRIN [Concomitant]
  8. ATENOLOL [Concomitant]
  9. OMEPRAZOLE [Concomitant]
  10. TRIAMCINOLONE ACETONIDE [Concomitant]

REACTIONS (1)
  - CONSTIPATION [None]
